FAERS Safety Report 7741367-6 (Version None)
Quarter: 2011Q3

REPORT INFORMATION
  Report Type: 
  Country: None (occurrence: None)
  Receive Date: 20110909
  Receipt Date: 20110902
  Transmission Date: 20111222
  Serious: No
  Sender: FDA-Public Use
  Company Number: US-PFIZER INC-2011208177

PATIENT
  Sex: Male

DRUGS (6)
  1. GEODON [Suspect]
     Indication: DEPRESSION
     Dosage: 40MG IN THE MORNING AND 120 MG AT BEDTIME
  2. KLONOPIN [Concomitant]
     Dosage: 0.5 MG, QID
  3. PROPRANOLOL [Concomitant]
     Dosage: 40 MG, QID
  4. AMITRIPTYLINE [Concomitant]
     Dosage: 25-50 MG HS PRN
  5. ADDERALL 5 [Concomitant]
     Dosage: 90 MG, UNK
  6. TRILEPTAL [Concomitant]
     Dosage: 1200  BID

REACTIONS (1)
  - DRUG EFFECT DECREASED [None]
